FAERS Safety Report 15288541 (Version 1)
Quarter: 2018Q3

REPORT INFORMATION
  Report Type: Spontaneous
  Country: US (occurrence: US)
  Receive Date: 20180817
  Receipt Date: 20180817
  Transmission Date: 20181010
  Serious: Yes (Other)
  Sender: FDA-Public Use
  Company Number: US-STRIDES ARCOLAB LIMITED-2018SP005532

PATIENT

DRUGS (3)
  1. PREDNISONE. [Concomitant]
     Active Substance: PREDNISONE
     Indication: CORNEAL TRANSPLANT
     Dosage: UNK
     Route: 048
  2. TACROLIMUS. [Suspect]
     Active Substance: TACROLIMUS
     Indication: CORNEAL TRANSPLANT
     Dosage: 4 MG, BID
     Route: 065
  3. MYCOPHENOLATE MOFETIL. [Suspect]
     Active Substance: MYCOPHENOLATE MOFETIL
     Indication: CORNEAL TRANSPLANT
     Dosage: 500 MG, BID
     Route: 065

REACTIONS (3)
  - Conjunctival haemorrhage [Recovered/Resolved]
  - Conjunctival melanoma [Recovered/Resolved]
  - Drug ineffective for unapproved indication [Unknown]
